FAERS Safety Report 12842364 (Version 4)
Quarter: 2016Q4

REPORT INFORMATION
  Report Type: Spontaneous
  Country: US (occurrence: US)
  Receive Date: 20161013
  Receipt Date: 20161124
  Transmission Date: 20170207
  Serious: No
  Sender: FDA-Public Use
  Company Number: ALCN2016US006930

PATIENT
  Sex: Female

DRUGS (1)
  1. ZADITOR [Suspect]
     Active Substance: KETOTIFEN FUMARATE
     Indication: PRODUCT USED FOR UNKNOWN INDICATION
     Route: 047

REACTIONS (1)
  - Eye irritation [Recovering/Resolving]
